FAERS Safety Report 4849083-5 (Version None)
Quarter: 2005Q4

REPORT INFORMATION
  Report Type: 
  Country: None (occurrence: None)
  Receive Date: 20051209
  Receipt Date: 20051128
  Transmission Date: 20060501
  Serious: Yes (Disabling)
  Sender: FDA-Public Use
  Company Number: 2005GB02328

PATIENT
  Age: 48 Year
  Sex: Male
  Weight: 112 kg

DRUGS (4)
  1. CRESTOR [Suspect]
     Indication: BLOOD CHOLESTEROL INCREASED
     Route: 048
     Dates: start: 20051107, end: 20051111
  2. GLICLAZIDE [Concomitant]
     Indication: DIABETES MELLITUS
     Dosage: 1 OM, 2 ON
     Route: 048
     Dates: start: 20030101
  3. METFORMIN [Concomitant]
     Indication: HYPERTENSION
     Route: 048
     Dates: start: 20030101
  4. LOSARTAN [Concomitant]
     Indication: HYPERTENSION
     Route: 048
     Dates: start: 20030101

REACTIONS (3)
  - DIZZINESS [None]
  - FATIGUE [None]
  - VISUAL ACUITY REDUCED [None]
